FAERS Safety Report 18161977 (Version 2)
Quarter: 2021Q1

REPORT INFORMATION
  Report Type: Spontaneous
  Country: US (occurrence: US)
  Receive Date: 20200818
  Receipt Date: 20210331
  Transmission Date: 20210419
  Serious: Yes (Death, Other)
  Sender: FDA-Public Use
  Company Number: US-GLAXOSMITHKLINE-US2020164509

PATIENT
  Sex: Male

DRUGS (9)
  1. ZANTAC [Suspect]
     Active Substance: RANITIDINE HYDROCHLORIDE
     Indication: DYSPEPSIA
     Dosage: 25 MG ,QD
     Dates: start: 200904, end: 201904
  2. ZANTAC [Suspect]
     Active Substance: RANITIDINE HYDROCHLORIDE
     Indication: DYSPEPSIA
     Dosage: 25 MG,QD
     Dates: start: 200904, end: 201904
  3. ZANTAC [Suspect]
     Active Substance: RANITIDINE HYDROCHLORIDE
     Dosage: UNK
     Dates: start: 20050715, end: 20171015
  4. RANITIDINE CAPSULE [Suspect]
     Active Substance: RANITIDINE
     Indication: DYSPEPSIA
     Dosage: 25 MG ,QD
     Dates: start: 200904, end: 201904
  5. ZANTAC [Suspect]
     Active Substance: RANITIDINE HYDROCHLORIDE
     Dosage: 40 MG, QD
     Dates: start: 200904, end: 201904
  6. ZANTAC [Suspect]
     Active Substance: RANITIDINE HYDROCHLORIDE
     Dosage: 40 MG, QD
     Dates: start: 200904, end: 201904
  7. ZANTAC [Suspect]
     Active Substance: RANITIDINE HYDROCHLORIDE
     Indication: DYSPEPSIA
     Dosage: 25 MG ,QD
     Dates: start: 200904, end: 201904
  8. ZANTAC [Suspect]
     Active Substance: RANITIDINE HYDROCHLORIDE
     Dosage: 40 MG QD
     Dates: start: 200904, end: 201904
  9. RANITIDINE CAPSULE [Suspect]
     Active Substance: RANITIDINE
     Dosage: 40 MG, QD
     Dates: start: 200904, end: 201904

REACTIONS (4)
  - Hepatic cancer [Fatal]
  - Colorectal cancer [Fatal]
  - Rectal cancer [Unknown]
  - Neoplasm malignant [Unknown]
